FAERS Safety Report 8891199 (Version 4)
Quarter: 2013Q2

REPORT INFORMATION
  Report Type: Spontaneous
  Country: US (occurrence: US)
  Receive Date: 20121107
  Receipt Date: 20130603
  Transmission Date: 20140414
  Serious: Yes (Other)
  Sender: FDA-Public Use
  Company Number: US-PFIZER INC-2012277405

PATIENT
  Age: 38 Year
  Sex: Female
  Weight: 54.42 kg

DRUGS (3)
  1. LYRICA [Suspect]
     Indication: FIBROMYALGIA
     Dosage: UNK
     Dates: start: 2011
  2. TOPAMAX [Suspect]
     Indication: FIBROMYALGIA
     Dosage: UNK
  3. SENNA [Suspect]
     Indication: CONSTIPATION
     Dosage: UNK

REACTIONS (9)
  - Withdrawal syndrome [Recovered/Resolved]
  - Delusion [Recovered/Resolved]
  - Pyrexia [Recovered/Resolved]
  - Nervousness [Recovered/Resolved]
  - Malaise [Recovered/Resolved]
  - Nausea [Recovered/Resolved]
  - Diarrhoea [Unknown]
  - Feeling of body temperature change [Unknown]
  - Constipation [Unknown]
